FAERS Safety Report 25655088 (Version 1)
Quarter: 2025Q3

REPORT INFORMATION
  Report Type: Spontaneous
  Country: GB (occurrence: GB)
  Receive Date: 20250807
  Receipt Date: 20250807
  Transmission Date: 20251021
  Serious: Yes (Other)
  Sender: MSN LABORATORIES PRIVATE LIMITED
  Company Number: GB-MHRA-EMIS-1984-425c8e65-d77c-4e49-836b-b65772bee9bd

PATIENT

DRUGS (2)
  1. ROSUVASTATIN [Suspect]
     Active Substance: ROSUVASTATIN
     Indication: Product used for unknown indication
     Route: 065
     Dates: start: 20250707, end: 20250724
  2. SCHERIPROCT [CINCHOCAINE HYDROCHLORIDE;CLEMIZOLE UNDECYLENATE;HEXACHLO [Concomitant]
     Indication: Product used for unknown indication
     Dosage: TO PERIANAL REGION EVERY 12 HOUR
     Route: 061
     Dates: start: 20250707

REACTIONS (2)
  - Swollen tongue [Unknown]
  - Nausea [Unknown]
